FAERS Safety Report 6772380-3 (Version None)
Quarter: 2010Q2

REPORT INFORMATION
  Report Type: 
  Country: None (occurrence: None)
  Receive Date: 20100616
  Receipt Date: 20091204
  Transmission Date: 20101027
  Serious: No
  Sender: FDA-Public Use
  Company Number: US-ASTRAZENECA-2009SE30404

PATIENT
  Age: 524 Month
  Sex: Female
  Weight: 102.1 kg

DRUGS (1)
  1. PULMICORT RESPULES [Suspect]
     Indication: ASTHMA
     Route: 055
     Dates: start: 20091101

REACTIONS (3)
  - ARTHRALGIA [None]
  - MYALGIA [None]
  - PAIN [None]
